FAERS Safety Report 6626184-2 (Version None)
Quarter: 2010Q1

REPORT INFORMATION
  Report Type: 
  Country: None (occurrence: None)
  Receive Date: 20100310
  Receipt Date: 20100302
  Transmission Date: 20100710
  Serious: Yes (Other)
  Sender: FDA-Public Use
  Company Number: AU-JNJCH-2010005713

PATIENT
  Sex: Female

DRUGS (1)
  1. VISINE EYE ALLERGY [Suspect]
     Indication: DRUG USE FOR UNKNOWN INDICATION
     Dosage: TEXT:ONE DROP A DAY
     Route: 047
     Dates: start: 20090101, end: 20100101

REACTIONS (4)
  - MIGRAINE [None]
  - MYDRIASIS [None]
  - VISION BLURRED [None]
  - WRONG TECHNIQUE IN DRUG USAGE PROCESS [None]
